FAERS Safety Report 4645790-8 (Version None)
Quarter: 2005Q2

REPORT INFORMATION
  Report Type: 
  Country: None (occurrence: None)
  Receive Date: 20050422
  Receipt Date: 20050422
  Transmission Date: 20051028
  Serious: Yes (Other)
  Sender: FDA-Public Use
  Company Number: None

PATIENT
  Age: 49 Year
  Sex: Male
  Weight: 80.3 kg

DRUGS (16)
  1. TRAMADOL [Suspect]
  2. DIPHENYHYDRAMINE HCL [Concomitant]
  3. LISINOPRIL [Concomitant]
  4. MULTI-VITAMIN [Concomitant]
  5. OMEPRAZOLE [Concomitant]
  6. THIAMINE HCL [Concomitant]
  7. TRAMADOL HCL [Concomitant]
  8. ETODOLAC [Concomitant]
  9. ACETAMINOPHEN [Concomitant]
  10. DOCUSATE [Concomitant]
  11. CLOTRIMAZOLE [Concomitant]
  12. MAGNESIUM CITRATE [Concomitant]
  13. ALBUTEROL [Concomitant]
  14. FOLIC ACID [Concomitant]
  15. BISACODYL [Concomitant]
  16. HEMORRHOIDAL [Concomitant]

REACTIONS (1)
  - RASH [None]
